FAERS Safety Report 9433495 (Version 1)
Quarter: 2013Q3

REPORT INFORMATION
  Report Type: Spontaneous
  Country: GB (occurrence: GB)
  Receive Date: 20130731
  Receipt Date: 20130731
  Transmission Date: 20140515
  Serious: Yes (Other)
  Sender: FDA-Public Use
  Company Number: GB-ASTRAZENECA-2013SE56247

PATIENT
  Age: 68 Year
  Sex: Male
  Weight: 95.5 kg

DRUGS (6)
  1. ZOLADEX [Suspect]
     Indication: PROSTATIC ADENOMA
     Route: 058
     Dates: start: 2001, end: 2001
  2. ANTIBIOTICS [Concomitant]
     Indication: PROSTATITIS
  3. CASODEX [Concomitant]
     Route: 048
     Dates: start: 2001
  4. CASODEX [Concomitant]
     Route: 048
  5. OMEPRAZOLE [Concomitant]
     Indication: BARRETT^S OESOPHAGUS
  6. ALPROSTADIL [Concomitant]

REACTIONS (14)
  - Asthenia [Unknown]
  - Hypothalamo-pituitary disorder [Not Recovered/Not Resolved]
  - Pruritus [Not Recovered/Not Resolved]
  - Amnesia [Unknown]
  - Rosacea [Not Recovered/Not Resolved]
  - Skin irritation [Not Recovered/Not Resolved]
  - Blood testosterone decreased [Recovered/Resolved]
  - Myalgia [Unknown]
  - Depressed mood [Not Recovered/Not Resolved]
  - Erectile dysfunction [Not Recovered/Not Resolved]
  - Hyperhidrosis [Not Recovered/Not Resolved]
  - Hot flush [Not Recovered/Not Resolved]
  - Loss of libido [Recovered/Resolved]
  - Weight increased [Unknown]
